FAERS Safety Report 5869839-X (Version None)
Quarter: 2008Q3

REPORT INFORMATION
  Report Type: 
  Country: None (occurrence: None)
  Receive Date: 20080904
  Receipt Date: 20080826
  Transmission Date: 20090109
  Serious: Yes (Other)
  Sender: FDA-Public Use
  Company Number: IE-PFIZER INC-2008071270

PATIENT
  Age: 34 Year
  Sex: Male

DRUGS (1)
  1. LIPITOR [Suspect]
     Route: 048

REACTIONS (5)
  - DIPLOPIA [None]
  - FACIAL PALSY [None]
  - LOWER MOTOR NEURONE LESION [None]
  - MUSCLE SPASMS [None]
  - MUSCULAR WEAKNESS [None]
